FAERS Safety Report 7056503-7 (Version None)
Quarter: 2010Q4

REPORT INFORMATION
  Report Type: 
  Country: None (occurrence: None)
  Receive Date: 20101021
  Receipt Date: 20101014
  Transmission Date: 20110411
  Serious: Yes (Other)
  Sender: FDA-Public Use
  Company Number: JP-PFIZER INC-2010125589

PATIENT
  Age: 88 Year
  Sex: Male

DRUGS (7)
  1. ZITHROMAX [Suspect]
     Indication: PERIODONTAL DISEASE
     Dosage: 500 MG, 1X/DAY
     Route: 048
     Dates: start: 20100922, end: 20100926
  2. ADALAT [Concomitant]
     Route: 048
  3. FRANDOL [Concomitant]
     Dosage: UNK
  4. VESICARE [Concomitant]
     Dosage: UNK
     Route: 048
  5. ASPIRIN [Concomitant]
     Route: 048
  6. PARIET [Concomitant]
     Route: 048
  7. WARFARIN [Concomitant]

REACTIONS (1)
  - BLOOD PRESSURE INCREASED [None]
